FAERS Safety Report 8629904 (Version 2)
Quarter: 2012Q4

REPORT INFORMATION
  Report Type: Report from Study
  Country: JP (occurrence: JP)
  Receive Date: 20120622
  Receipt Date: 20121119
  Transmission Date: 20130627
  Serious: Yes (Death, Other)
  Sender: FDA-Public Use
  Company Number: JP-ASTELLAS-2012US005562

PATIENT
  Age: 66 Year
  Sex: Male
  Weight: 49 kg

DRUGS (25)
  1. ERLOTINIB TABLET [Suspect]
     Indication: ADENOCARCINOMA PANCREAS
     Dosage: 100 mg, UID/QD
     Route: 048
     Dates: start: 20111003, end: 20111228
  2. GEMCITABINE HYDROCHLORIDE [Suspect]
     Indication: ADENOCARCINOMA PANCREAS
     Dosage: 1000 mg/m2, UID/QD
     Route: 041
     Dates: start: 20111003, end: 20111003
  3. GEMCITABINE HYDROCHLORIDE [Suspect]
     Dosage: 1000 mg/m2, UID/QD
     Route: 041
     Dates: start: 20111011, end: 20111011
  4. GEMCITABINE HYDROCHLORIDE [Suspect]
     Dosage: 1000 mg/m2, UID/QD
     Route: 041
     Dates: start: 20111017, end: 20111017
  5. GEMCITABINE HYDROCHLORIDE [Suspect]
     Dosage: 1000 mg/m2, UID/QD
     Route: 041
     Dates: start: 20111031, end: 20111031
  6. GEMCITABINE HYDROCHLORIDE [Suspect]
     Dosage: 1000 mg/m2, UID/QD
     Route: 041
     Dates: start: 20111109, end: 20111109
  7. GEMCITABINE HYDROCHLORIDE [Suspect]
     Dosage: 1000 mg/m2, UID/QD
     Route: 041
     Dates: start: 20111116, end: 20111116
  8. GEMCITABINE HYDROCHLORIDE [Suspect]
     Dosage: 1000 mg/m2, UID/QD
     Route: 041
     Dates: start: 20111202, end: 20111202
  9. GEMCITABINE HYDROCHLORIDE [Suspect]
     Dosage: 1000 mg/m2, UID/QD
     Route: 041
     Dates: start: 20111209, end: 20111209
  10. GEMCITABINE HYDROCHLORIDE [Suspect]
     Dosage: 1000 mg/m2, UID/QD
     Route: 041
     Dates: start: 20111216, end: 20111216
  11. AMARYL [Concomitant]
     Indication: PRODUCT USED FOR UNKNOWN INDICATION
     Dosage: 1 mg, UID/QD
     Route: 048
     Dates: start: 2012
  12. GLACTIV [Concomitant]
     Indication: PRODUCT USED FOR UNKNOWN INDICATION
     Dosage: 50 mg, UID/QD
     Route: 048
     Dates: start: 20111108
  13. JANUVIA [Concomitant]
     Indication: PRODUCT USED FOR UNKNOWN INDICATION
     Dosage: 50 mg, UID/QD
     Route: 048
     Dates: start: 20111109, end: 2012
  14. ACTOS [Concomitant]
     Indication: PRODUCT USED FOR UNKNOWN INDICATION
     Dosage: 15 mg, UID/QD
     Route: 048
     Dates: end: 2012
  15. LIPITOR [Concomitant]
     Indication: PRODUCT USED FOR UNKNOWN INDICATION
     Dosage: 10 mg, UID/QD
     Route: 048
     Dates: end: 20111024
  16. KINEDAK [Concomitant]
     Indication: PRODUCT USED FOR UNKNOWN INDICATION
     Dosage: 150 mg, UID/QD
     Route: 048
     Dates: end: 20111024
  17. BAYASPIRIN [Concomitant]
     Indication: PRODUCT USED FOR UNKNOWN INDICATION
     Dosage: 100 mg, UID/QD
     Route: 048
     Dates: end: 20110916
  18. BAYASPIRIN [Concomitant]
     Dosage: 100 mg, UID/QD
     Route: 048
     Dates: start: 20111004, end: 2012
  19. VITAMIN E                          /00110501/ [Concomitant]
     Indication: PRODUCT USED FOR UNKNOWN INDICATION
     Dosage: 300 mg, UID/QD
     Route: 048
     Dates: end: 2012
  20. LOXOPROFEN SODIUM [Concomitant]
     Indication: PRODUCT USED FOR UNKNOWN INDICATION
     Dosage: UNK
  21. MUCOSTA [Concomitant]
     Indication: PRODUCT USED FOR UNKNOWN INDICATION
     Dosage: 300 mg, UID/QD
     Route: 048
     Dates: start: 20111013, end: 2012
  22. MAGMITT [Concomitant]
     Indication: PRODUCT USED FOR UNKNOWN INDICATION
     Dosage: 990 mg, UID/QD
     Route: 048
     Dates: start: 20111003, end: 2012
  23. TAKEPRON [Concomitant]
     Indication: PRODUCT USED FOR UNKNOWN INDICATION
     Dosage: 15 mg, UID/QD
     Dates: start: 20111228, end: 2012
  24. GRANISETRON                        /01178102/ [Concomitant]
     Indication: PRODUCT USED FOR UNKNOWN INDICATION
     Dosage: 1 mg, Weekly
     Route: 042
     Dates: start: 20111003
  25. DEXART [Concomitant]
     Indication: PRODUCT USED FOR UNKNOWN INDICATION
     Dosage: 6.6 mg, Weekly
     Route: 042
     Dates: start: 20111003

REACTIONS (8)
  - White blood cell count decreased [Recovered/Resolved]
  - Neutrophil count decreased [Recovered/Resolved]
  - Anaemia [Recovered/Resolved]
  - Platelet count abnormal [Not Recovered/Not Resolved]
  - Hypoalbuminaemia [Not Recovered/Not Resolved]
  - Interstitial lung disease [Recovered/Resolved]
  - Rash [Recovered/Resolved]
  - Malignant neoplasm progression [Fatal]
